FAERS Safety Report 8222971-8 (Version None)
Quarter: 2012Q1

REPORT INFORMATION
  Report Type: 
  Country: None (occurrence: None)
  Receive Date: 20120320
  Receipt Date: 20120316
  Transmission Date: 20120608
  Serious: Yes (Hospitalization)
  Sender: FDA-Public Use
  Company Number: US-MERCK-1201USA03614

PATIENT
  Age: 71 Year
  Sex: Male

DRUGS (17)
  1. LISINOPRIL [Concomitant]
     Route: 048
  2. NITROGLYCERIN [Concomitant]
     Route: 065
  3. RANITIDINE [Concomitant]
     Route: 065
  4. OMEGA-3 MARINE TRIGLYCERIDES [Concomitant]
     Route: 065
  5. LASIX [Concomitant]
     Route: 065
  6. SIMVASTATIN [Concomitant]
     Route: 048
  7. ASPIRIN [Concomitant]
     Route: 065
  8. CYMBALTA [Concomitant]
     Route: 065
  9. LEVOTHYROXINE SODIUM [Concomitant]
     Route: 065
  10. METOPROLOL [Concomitant]
     Route: 065
  11. CYANOCOBALAMIN [Concomitant]
     Route: 065
  12. ALLOPURINOL [Concomitant]
     Route: 065
  13. COLCHICINE [Concomitant]
     Route: 065
  14. NEXIUM [Concomitant]
     Route: 065
  15. ULTRASE MT20 [Concomitant]
     Route: 065
  16. JANUMET [Suspect]
     Indication: DIABETES MELLITUS
     Route: 048
     Dates: start: 20100319, end: 20120120
  17. GABAPENTIN [Concomitant]
     Route: 065

REACTIONS (5)
  - BACK PAIN [None]
  - PAIN [None]
  - GALLBLADDER DISORDER [None]
  - ABDOMINAL PAIN [None]
  - ABDOMINAL PAIN LOWER [None]
